FAERS Safety Report 10133010 (Version 2)
Quarter: 2014Q2

REPORT INFORMATION
  Report Type: Spontaneous
  Country: US (occurrence: US)
  Receive Date: 20140428
  Receipt Date: 20140526
  Transmission Date: 20141212
  Serious: No
  Sender: FDA-Public Use
  Company Number: US-PFIZER INC-2014115514

PATIENT
  Age: 81 Year
  Sex: Male
  Weight: 72.56 kg

DRUGS (1)
  1. CELEBREX [Suspect]
     Indication: BACK PAIN
     Dosage: DAILY
     Dates: start: 2014, end: 201403

REACTIONS (1)
  - Pain [Not Recovered/Not Resolved]
